FAERS Safety Report 4823447-8 (Version None)
Quarter: 2005Q4

REPORT INFORMATION
  Report Type: 
  Country: None (occurrence: None)
  Receive Date: 20051107
  Receipt Date: 20051024
  Transmission Date: 20060501
  Serious: Yes (Hospitalization)
  Sender: FDA-Public Use
  Company Number: GXKR2005GB01859

PATIENT
  Age: 84 Year
  Sex: Female

DRUGS (8)
  1. LISINOPRIL [Suspect]
     Dosage: 20 MG
  2. GLYBURIDE [Suspect]
     Dosage: ORAL
     Route: 048
  3. HYDROCHLOROTHIAZIDE [Suspect]
     Dosage: 12.5 MG, QD
  4. DOXAZOSIN (DOXAZOSIN) [Concomitant]
  5. SIMVASTATIN [Concomitant]
  6. ASPIRIN [Concomitant]
  7. TRAVOPROST (TRAVOPROST) [Concomitant]
  8. CARTEOLOL (CARTEOLOL) [Concomitant]

REACTIONS (2)
  - FALL [None]
  - RHABDOMYOLYSIS [None]
